FAERS Safety Report 9630514 (Version 2)
Quarter: 2013Q4

REPORT INFORMATION
  Report Type: Spontaneous
  Country: JP (occurrence: JP)
  Receive Date: 20131018
  Receipt Date: 20131028
  Transmission Date: 20140711
  Serious: Yes (Hospitalization, Other)
  Sender: FDA-Public Use
  Company Number: JP-ASTRAZENECA-2013SE76535

PATIENT
  Sex: Female

DRUGS (4)
  1. SEROQUEL [Suspect]
     Indication: SCHIZOPHRENIA
     Route: 048
  2. ANTIBIOTICS [Suspect]
     Route: 065
  3. RISPERIDONE [Concomitant]
     Route: 048
  4. OTHER MEDICATIONS [Concomitant]

REACTIONS (2)
  - Renal failure acute [Unknown]
  - Condition aggravated [Unknown]
